FAERS Safety Report 19459748 (Version 1)
Quarter: 2021Q2

REPORT INFORMATION
  Report Type: Spontaneous
  Country: ES (occurrence: ES)
  Receive Date: 20210624
  Receipt Date: 20210624
  Transmission Date: 20210717
  Serious: Yes (Other)
  Sender: FDA-Public Use
  Company Number: ES-SAKK-2018SA325594AA

PATIENT
  Sex: Male
  Weight: 75 kg

DRUGS (3)
  1. APIDRA [Concomitant]
     Active Substance: INSULIN GLULISINE
     Indication: TYPE 2 DIABETES MELLITUS
     Dosage: UNK, PRN (AS PER REGIMEN)
     Route: 058
  2. TOUJEO [Concomitant]
     Active Substance: INSULIN GLARGINE
     Indication: TYPE 2 DIABETES MELLITUS
     Dosage: UNK
     Route: 058
  3. LANTUS [Suspect]
     Active Substance: INSULIN GLARGINE
     Indication: TYPE 2 DIABETES MELLITUS
     Dosage: UNK
     Route: 058

REACTIONS (9)
  - Hypoglycaemia [Unknown]
  - Blood glucose increased [Recovered/Resolved]
  - Hyperhidrosis [Unknown]
  - Extra dose administered [Unknown]
  - Dizziness [Unknown]
  - Malaise [Recovered/Resolved]
  - Blood glucose decreased [Recovered/Resolved]
  - Diabetic metabolic decompensation [Not Recovered/Not Resolved]
  - Hyperglycaemia [Unknown]
